FAERS Safety Report 21843624 (Version 1)
Quarter: 2023Q1

REPORT INFORMATION
  Report Type: Spontaneous
  Country: RO (occurrence: RO)
  Receive Date: 20230110
  Receipt Date: 20230110
  Transmission Date: 20230418
  Serious: Yes (Other)
  Sender: FDA-Public Use
  Company Number: RO-GLAXOSMITHKLINE-RO2023GSK001816

PATIENT

DRUGS (2)
  1. SUMATRIPTAN [Suspect]
     Active Substance: SUMATRIPTAN
     Indication: Migraine
     Dosage: AT NIGHT
  2. BISOPROLOL [Concomitant]
     Active Substance: BISOPROLOL
     Indication: Hypertension
     Dosage: UNK

REACTIONS (9)
  - Optic ischaemic neuropathy [Unknown]
  - Visual acuity reduced [Unknown]
  - Visual field defect [Unknown]
  - Eye oedema [Unknown]
  - Hypercholesterolaemia [Unknown]
  - Microangiopathy [Unknown]
  - Retinal ischaemia [Unknown]
  - Hypotension [Unknown]
  - Vasoconstriction [Unknown]
